FAERS Safety Report 17834107 (Version 1)
Quarter: 2020Q2

REPORT INFORMATION
  Report Type: Spontaneous
  Country: US (occurrence: US)
  Receive Date: 20200528
  Receipt Date: 20200528
  Transmission Date: 20200714
  Serious: No
  Sender: FDA-Public Use
  Company Number: US-BAUSCH-BL-2020-014912

PATIENT
  Age: 82 Year
  Sex: Female

DRUGS (2)
  1. TIMOLOL MALEATE OPHTHALMIC GEL FORMING SOLUTION [Suspect]
     Active Substance: TIMOLOL MALEATE
     Indication: PRODUCT USED FOR UNKNOWN INDICATION
     Route: 047
     Dates: start: 201804, end: 20200509
  2. TIMOPTIC-XE [Suspect]
     Active Substance: TIMOLOL MALEATE
     Indication: GLAUCOMA
     Dosage: STARTED YEARS AGO, 1 DROP IN EACH EYE
     Route: 047
     Dates: end: 201804

REACTIONS (3)
  - Oedema peripheral [Recovering/Resolving]
  - Eye irritation [Recovering/Resolving]
  - Tendonitis [Recovering/Resolving]
